FAERS Safety Report 18578655 (Version 1)
Quarter: 2020Q4

REPORT INFORMATION
  Report Type: Spontaneous
  Country: GB (occurrence: GB)
  Receive Date: 20201204
  Receipt Date: 20201204
  Transmission Date: 20210114
  Serious: Yes (Other)
  Sender: FDA-Public Use
  Company Number: GB-TEVA-2020-GB-1854185

PATIENT
  Age: 56 Year
  Sex: Female

DRUGS (10)
  1. LEVOTHYROXINE. [Concomitant]
     Active Substance: LEVOTHYROXINE
     Dosage: 100 MICROGRAM DAILY; IN THE MORNING
     Dates: start: 20201005
  2. PREDNISOLONE. [Concomitant]
     Active Substance: PREDNISOLONE
     Dosage: 6 DAILY FOR 5 DAYS THEN REDUCE BY 1?TABLET/DAYTHEN STOP. CONTINUE TO WEAN AS DIRECTED
     Dates: start: 20200821
  3. BETNOVATE [Concomitant]
     Active Substance: BETAMETHASONE
     Indication: RASH PRURITIC
     Dosage: APPLY TWICE A DAY, DO NOT USE ON FACE
     Dates: start: 20200819
  4. AIROMIR [Suspect]
     Active Substance: ALBUTEROL SULFATE
     Indication: HEADACHE
     Dosage: 100MICROGRAMS/DOSE
     Route: 055
  5. LEVETIRACETAM. [Concomitant]
     Active Substance: LEVETIRACETAM
     Dosage: AS DIRECTED AS PER NEUROLOGY. 250MG AND 500MG
     Dates: start: 20200925
  6. FEXOFENADINE [Concomitant]
     Active Substance: FEXOFENADINE HYDROCHLORIDE
     Dates: start: 20200820
  7. LORATADINE. [Concomitant]
     Active Substance: LORATADINE
     Indication: URTICARIA
     Dosage: 3-4 DAILY WHEN NEEDED THEN AIM TO GRADUALLY REDUCE DOSE
     Dates: start: 20200819
  8. VENTOLIN [Concomitant]
     Active Substance: ALBUTEROL SULFATE
     Dosage: 100MICROGRAMS/DOSE
     Route: 055
     Dates: start: 20201109
  9. SALBUTAMOL [Concomitant]
     Active Substance: ALBUTEROL
     Dosage: AS DIRECTED. 100MICROGRAMS/DOSE
     Route: 055
     Dates: start: 20200821, end: 20201109
  10. FLUTICASONE. [Concomitant]
     Active Substance: FLUTICASONE
     Dosage: USE 1 SPRAY EACH NOSTRIL. 27.5MICROGRAMS/DOSE
     Dates: start: 20201005

REACTIONS (1)
  - Anaphylactic reaction [Recovering/Resolving]
